FAERS Safety Report 9030520 (Version 2)
Quarter: 2013Q1

REPORT INFORMATION
  Report Type: Spontaneous
  Country: US (occurrence: US)
  Receive Date: 20130122
  Receipt Date: 20130308
  Transmission Date: 20140127
  Serious: Yes (Other)
  Sender: FDA-Public Use
  Company Number: US-PFIZER INC-2013024530

PATIENT
  Age: 74 Year
  Sex: Female
  Weight: 48.07 kg

DRUGS (1)
  1. PREMARIN VAGINAL CREAM [Suspect]
     Indication: ATROPHIC VULVOVAGINITIS
     Dosage: UNK
     Route: 067
     Dates: start: 20130107, end: 20130116

REACTIONS (7)
  - Visual impairment [Unknown]
  - Impaired driving ability [Unknown]
  - Disorientation [Unknown]
  - Crying [Unknown]
  - Oral herpes [Unknown]
  - Headache [Unknown]
  - Middle insomnia [Unknown]
